FAERS Safety Report 23984182 (Version 3)
Quarter: 2024Q3

REPORT INFORMATION
  Report Type: Report from Study
  Country: US (occurrence: US)
  Receive Date: 20240618
  Receipt Date: 20240809
  Transmission Date: 20241016
  Serious: Yes (Hospitalization, Other)
  Sender: ABBVIE
  Company Number: US-ABBVIE-5800363

PATIENT
  Age: 75 Year
  Sex: Male
  Weight: 81 kg

DRUGS (8)
  1. SKYRIZI [Suspect]
     Active Substance: RISANKIZUMAB-RZAA
     Indication: Psoriasis
     Dosage: FORM STRENGTH: 150 MILLIGRAMS
     Route: 058
     Dates: start: 20220318
  2. GLIPIZIDE [Concomitant]
     Active Substance: GLIPIZIDE
     Indication: Product used for unknown indication
  3. METFORMIN [Concomitant]
     Active Substance: METFORMIN HYDROCHLORIDE
     Indication: Product used for unknown indication
  4. LISINOPRIL [Concomitant]
     Active Substance: LISINOPRIL
     Indication: Product used for unknown indication
  5. PLAVIX [Concomitant]
     Active Substance: CLOPIDOGREL BISULFATE
     Indication: Product used for unknown indication
  6. METOPROLOL [Concomitant]
     Active Substance: METOPROLOL
     Indication: Product used for unknown indication
  7. WARFARIN [Concomitant]
     Active Substance: WARFARIN
     Indication: Product used for unknown indication
  8. PRAVASTATIN [Concomitant]
     Active Substance: PRAVASTATIN
     Indication: Product used for unknown indication

REACTIONS (13)
  - Peripheral vascular disorder [Recovered/Resolved]
  - Poor peripheral circulation [Recovered/Resolved]
  - Peripheral vascular disorder [Not Recovered/Not Resolved]
  - Peripheral ischaemia [Unknown]
  - Chronic kidney disease [Not Recovered/Not Resolved]
  - Hypoaesthesia [Unknown]
  - Lipids increased [Unknown]
  - Soft tissue atrophy [Unknown]
  - Poor peripheral circulation [Unknown]
  - Coronary artery disease [Not Recovered/Not Resolved]
  - Skin ulcer [Unknown]
  - Pain in extremity [Unknown]
  - Pain in extremity [Recovered/Resolved]

NARRATIVE: CASE EVENT DATE: 20221001
